FAERS Safety Report 10880186 (Version 5)
Quarter: 2015Q4

REPORT INFORMATION
  Report Type: Report from Study
  Country: US (occurrence: US)
  Receive Date: 20150302
  Receipt Date: 20151117
  Transmission Date: 20160304
  Serious: Yes (Hospitalization)
  Sender: FDA-Public Use
  Company Number: US-ACTELION-A-NJ2015-113668

PATIENT
  Age: 73 Year
  Sex: Female

DRUGS (3)
  1. ADCIRCA [Concomitant]
     Active Substance: TADALAFIL
  2. VENTAVIS [Suspect]
     Active Substance: ILOPROST
     Indication: PULMONARY ARTERIAL HYPERTENSION
     Dosage: 5 MCG, 6X/DAY
     Route: 055
     Dates: start: 20111020
  3. LETAIRIS [Concomitant]
     Active Substance: AMBRISENTAN

REACTIONS (9)
  - Cardiac pacemaker insertion [Unknown]
  - Fluid retention [Unknown]
  - Cardiac disorder [Unknown]
  - Oedema [Unknown]
  - Dyspnoea [Unknown]
  - Atrial fibrillation [Unknown]
  - Palpitations [Unknown]
  - Chest pain [Unknown]
  - Atrial flutter [Unknown]

NARRATIVE: CASE EVENT DATE: 20150207
